FAERS Safety Report 5694283-8 (Version None)
Quarter: 2008Q2

REPORT INFORMATION
  Report Type: 
  Country: None (occurrence: None)
  Receive Date: 20080404
  Receipt Date: 20080403
  Transmission Date: 20081010
  Serious: Yes (Other)
  Sender: FDA-Public Use
  Company Number: US-BAYER-200715020NA

PATIENT
  Age: 65 Year
  Sex: Female
  Weight: 87 kg

DRUGS (10)
  1. BETASERON [Suspect]
     Indication: MULTIPLE SCLEROSIS
     Dosage: TOTAL DAILY DOSE: 8 MIU
     Route: 058
     Dates: start: 20070830, end: 20070101
  2. BETASERON [Suspect]
     Dosage: TOTAL DAILY DOSE: 6 MIU
     Route: 058
     Dates: start: 20070101
  3. LYRICA [Concomitant]
  4. PROVIGIL [Concomitant]
  5. BACLOFEN [Concomitant]
  6. EFFEXOR [Concomitant]
  7. LISINOPRIL [Concomitant]
  8. NEXIUM [Concomitant]
  9. LASIX [Concomitant]
     Dosage: TOTAL DAILY DOSE: 20  MG
  10. TRAZODONE HCL [Concomitant]

REACTIONS (6)
  - CANDIDIASIS [None]
  - DYSPNOEA [None]
  - ORAL PAIN [None]
  - STOMATITIS [None]
  - WEIGHT INCREASED [None]
  - WHEEZING [None]
